FAERS Safety Report 5784244-2 (Version None)
Quarter: 2008Q2

REPORT INFORMATION
  Report Type: 
  Country: None (occurrence: None)
  Receive Date: 20080624
  Receipt Date: 20070427
  Transmission Date: 20081010
  Serious: No
  Sender: FDA-Public Use
  Company Number: US-ASTRAZENECA-2007UW08250

PATIENT
  Age: 3 Year
  Sex: Male
  Weight: 7.7 kg

DRUGS (3)
  1. PULMICORT-100 [Suspect]
     Indication: ASTHMA
     Route: 055
     Dates: start: 20060101
  2. ALBUTEROL [Concomitant]
     Indication: ASTHMA
  3. FLONASE [Concomitant]
     Indication: ASTHMA

REACTIONS (3)
  - COUGH [None]
  - EAR INFECTION [None]
  - NASAL CONGESTION [None]
